FAERS Safety Report 25795471 (Version 1)
Quarter: 2025Q3

REPORT INFORMATION
  Report Type: Spontaneous
  Country: US (occurrence: None)
  Receive Date: 20250911
  Receipt Date: 20250911
  Transmission Date: 20251020
  Serious: Yes (Hospitalization)
  Sender: FDA-CTU
  Company Number: None

PATIENT
  Sex: Female

DRUGS (1)
  1. ACTEMRA ACTPEN [Suspect]
     Active Substance: TOCILIZUMAB
     Indication: Rheumatoid arthritis
     Dosage: INJECT 1 PEN UNDER THE SKIN (SUBCUTANEOUS INJECTION) EVERY 7 DAYS
     Route: 058
     Dates: start: 20241214

REACTIONS (10)
  - Loss of personal independence in daily activities [None]
  - Fatigue [None]
  - Alopecia [None]
  - Alopecia [None]
  - Headache [None]
  - Infection [None]
  - Arthralgia [None]
  - Nausea [None]
  - Vomiting [None]
  - Product dose omission issue [None]
